FAERS Safety Report 19979732 (Version 2)
Quarter: 2023Q1

REPORT INFORMATION
  Report Type: Spontaneous
  Country: TR (occurrence: TR)
  Receive Date: 20211021
  Receipt Date: 20230123
  Transmission Date: 20230418
  Serious: Yes (Other)
  Sender: FDA-Public Use
  Company Number: TR-NOVARTISPH-NVSC2021TR236834

PATIENT
  Age: 58 Year
  Sex: Female

DRUGS (2)
  1. LETROZOLE [Suspect]
     Active Substance: LETROZOLE
     Indication: Breast mass
     Dosage: UNK
     Route: 048
     Dates: start: 20200217
  2. DENOSUMAB [Suspect]
     Active Substance: DENOSUMAB
     Indication: Breast mass
     Dosage: UNK
     Route: 058
     Dates: start: 20200217

REACTIONS (3)
  - Neutropenia [Unknown]
  - Pelvic mass [Unknown]
  - Neoplasm progression [Unknown]
